FAERS Safety Report 20425903 (Version 1)
Quarter: 2022Q1

REPORT INFORMATION
  Report Type: Report from Study
  Country: US (occurrence: US)
  Receive Date: 20220204
  Receipt Date: 20220204
  Transmission Date: 20220423
  Serious: No
  Sender: FDA-Public Use
  Company Number: US-EXELIXIS-CABO-21040544

PATIENT
  Age: 51 Year
  Sex: Male
  Weight: 90.7 kg

DRUGS (12)
  1. CABOMETYX [Suspect]
     Active Substance: CABOZANTINIB S-MALATE
     Indication: Renal cell carcinoma
     Dosage: 60 MG, QD
     Route: 048
     Dates: start: 20200920
  2. LAMOTRIGINE [Concomitant]
     Active Substance: LAMOTRIGINE
  3. PHENYTOIN SODIUM [Concomitant]
     Active Substance: PHENYTOIN SODIUM
  4. TOPIRAMATE [Concomitant]
     Active Substance: TOPIRAMATE
  5. SILDENAFIL CITRATE [Concomitant]
     Active Substance: SILDENAFIL CITRATE
  6. OMEPRAZOLE [Concomitant]
     Active Substance: OMEPRAZOLE
  7. ACETAMINOPHEN\HYDROCODONE [Concomitant]
     Active Substance: ACETAMINOPHEN\HYDROCODONE
  8. CITALOPRAM [Concomitant]
     Active Substance: CITALOPRAM HYDROBROMIDE
  9. ELIQUIS [Concomitant]
     Active Substance: APIXABAN
  10. AZATHIOPRINE [Concomitant]
     Active Substance: AZATHIOPRINE
  11. GABAPENTIN [Concomitant]
     Active Substance: GABAPENTIN
  12. FENTANYL [Concomitant]
     Active Substance: FENTANYL

REACTIONS (1)
  - Neoplasm [Unknown]

NARRATIVE: CASE EVENT DATE: 20210201
